FAERS Safety Report 6586914-5 (Version None)
Quarter: 2010Q1

REPORT INFORMATION
  Report Type: 
  Country: None (occurrence: None)
  Receive Date: 20100217
  Receipt Date: 20090513
  Transmission Date: 20100710
  Serious: Yes (Hospitalization, Other)
  Sender: FDA-Public Use
  Company Number: US-ALLERGAN-0902131US

PATIENT
  Age: 31 Year
  Sex: Female
  Weight: 68.027 kg

DRUGS (6)
  1. BOTOX COSMETIC [Suspect]
     Indication: SKIN WRINKLING
     Dosage: 36 UNITS, SINGLE
     Route: 030
     Dates: start: 20081024, end: 20081024
  2. BOTOX COSMETIC [Suspect]
     Dosage: UNK, SINGLE
     Route: 030
     Dates: start: 20050101, end: 20050101
  3. BOTOX COSMETIC [Suspect]
     Dosage: UNK, SINGLE
     Route: 030
     Dates: start: 20060101, end: 20060101
  4. WELLBUTRIN [Concomitant]
     Indication: DEPRESSION
     Dosage: 300 MG, QD
     Route: 048
     Dates: start: 20081001
  5. WELLBUTRIN [Concomitant]
     Indication: SEASONAL AFFECTIVE DISORDER
  6. MULTI-VITAMINS [Concomitant]
     Dosage: UNK, QD
     Route: 048

REACTIONS (2)
  - DYSPHAGIA [None]
  - ERYTHEMA [None]
